FAERS Safety Report 5563846-2 (Version None)
Quarter: 2007Q4

REPORT INFORMATION
  Report Type: 
  Country: None (occurrence: None)
  Receive Date: 20071217
  Receipt Date: 20070830
  Transmission Date: 20080405
  Serious: No
  Sender: FDA-Public Use
  Company Number: US-ASTRAZENECA-2007UW20619

PATIENT
  Age: 71 Year
  Sex: Female
  Weight: 83.9 kg

DRUGS (1)
  1. CRESTOR [Suspect]
     Indication: DYSLIPIDAEMIA
     Route: 048
     Dates: start: 20070829

REACTIONS (3)
  - GAIT DISTURBANCE [None]
  - INJURY [None]
  - PAIN IN EXTREMITY [None]
